FAERS Safety Report 15775970 (Version 2)
Quarter: 2019Q1

REPORT INFORMATION
  Report Type: Report from Study
  Country: US (occurrence: US)
  Receive Date: 20181231
  Receipt Date: 20190131
  Transmission Date: 20190417
  Serious: Yes (Hospitalization)
  Sender: FDA-Public Use
  Company Number: US-BIOGEN-2018BI00676689

PATIENT
  Sex: Female

DRUGS (2)
  1. TECFIDERA [Suspect]
     Active Substance: DIMETHYL FUMARATE
     Indication: MULTIPLE SCLEROSIS
     Dosage: START OF THERAPY, TAKE 120 MG TWICE A DAY FOR 7 DAYS THEN INCREASE TO 240 MG TWICE A DAY AFTER
     Route: 048
     Dates: start: 20181128
  2. TECFIDERA [Suspect]
     Active Substance: DIMETHYL FUMARATE
     Dosage: START OF THERAPY, TAKE 120 MG TWICE A DAY FOR 7 DAYS THEN INCREASE TO 240 MG TWICE A DAY AFTER
     Route: 048

REACTIONS (8)
  - Dehydration [Recovered/Resolved]
  - Pyrexia [Recovered/Resolved]
  - Diarrhoea [Unknown]
  - Muscle spasms [Unknown]
  - Hepatic enzyme increased [Not Recovered/Not Resolved]
  - Vomiting [Unknown]
  - White blood cell count abnormal [Recovered/Resolved]
  - Nausea [Unknown]
